FAERS Safety Report 5050344-8 (Version None)
Quarter: 2006Q3

REPORT INFORMATION
  Report Type: 
  Country: None (occurrence: None)
  Receive Date: 20060706
  Receipt Date: 20060621
  Transmission Date: 20061208
  Serious: Yes (Hospitalization)
  Sender: FDA-Public Use
  Company Number: 8017499

PATIENT
  Age: 39 Year
  Sex: Female
  Weight: 120 kg

DRUGS (4)
  1. LORTAB [Suspect]
     Indication: PAIN MANAGEMENT
     Dosage: 30 MG 4/D PO
     Route: 048
     Dates: start: 20050601, end: 20060119
  2. ALVIMOPAN [Suspect]
     Indication: INTESTINAL FUNCTIONAL DISORDER
     Dosage: 0.5 MG 1/D PO
     Route: 048
     Dates: start: 20051026
  3. ACETAMINOPHEN [Suspect]
     Dosage: 500 MG PRN PO
     Route: 048
     Dates: start: 19960101, end: 20060128
  4. SETRALINE HCL [Concomitant]

REACTIONS (4)
  - BILIARY DILATATION [None]
  - DRUG TOXICITY [None]
  - FOOD POISONING [None]
  - HEPATITIS [None]
